FAERS Safety Report 5762704-8 (Version None)
Quarter: 2008Q2

REPORT INFORMATION
  Report Type: 
  Country: None (occurrence: None)
  Receive Date: 20080609
  Receipt Date: 20080527
  Transmission Date: 20081010
  Serious: Yes (Other)
  Sender: FDA-Public Use
  Company Number: JP-MERCK-0805USA02086

PATIENT
  Age: 52 Year
  Sex: Female

DRUGS (4)
  1. MAXALT [Suspect]
     Indication: MIGRAINE
     Route: 048
  2. HYZAAR [Concomitant]
     Route: 048
  3. NATRIX [Concomitant]
     Route: 048
  4. LASIX [Concomitant]
     Route: 065

REACTIONS (3)
  - ARTHRALGIA [None]
  - CHEST PAIN [None]
  - PAIN IN EXTREMITY [None]
